FAERS Safety Report 11653221 (Version 1)
Quarter: 2015Q4

REPORT INFORMATION
  Report Type: Spontaneous
  Country: US (occurrence: US)
  Receive Date: 20151022
  Receipt Date: 20151022
  Transmission Date: 20160304
  Serious: No
  Sender: FDA-Public Use
  Company Number: US-TEVA-602812USA

PATIENT
  Age: 26 Year
  Sex: Female

DRUGS (1)
  1. COPAXONE [Suspect]
     Active Substance: GLATIRAMER ACETATE
     Indication: MULTIPLE SCLEROSIS
     Route: 058
     Dates: start: 20150820

REACTIONS (4)
  - Pruritus [Unknown]
  - Injection site reaction [Unknown]
  - Injection site mass [Unknown]
  - Erythema [Unknown]

NARRATIVE: CASE EVENT DATE: 20151015
